FAERS Safety Report 15342373 (Version 1)
Quarter: 2018Q3

REPORT INFORMATION
  Report Type: Spontaneous
  Country: FR (occurrence: FR)
  Receive Date: 20180902
  Receipt Date: 20180902
  Transmission Date: 20181010
  Serious: Yes (Congenital Anomaly)
  Sender: FDA-Public Use
  Company Number: PHHY2018FR084831

PATIENT
  Sex: Female
  Weight: 1.9 kg

DRUGS (1)
  1. CLARITHROMYCIN. [Suspect]
     Active Substance: CLARITHROMYCIN
     Indication: FOETAL EXPOSURE DURING PREGNANCY
     Dosage: MATERNAL DOSE: 750 MG, QD
     Route: 064

REACTIONS (2)
  - Gastroschisis [Recovered/Resolved]
  - Foetal malnutrition [Recovering/Resolving]

NARRATIVE: CASE EVENT DATE: 20140701
